FAERS Safety Report 24758341 (Version 1)
Quarter: 2024Q4

REPORT INFORMATION
  Report Type: Spontaneous
  Country: GB (occurrence: GB)
  Receive Date: 20241220
  Receipt Date: 20241220
  Transmission Date: 20250114
  Serious: Yes (Other)
  Sender: ASCEND THERAPEUTICS US, LLC
  Company Number: GB-Ascend Therapeutics US, LLC-2167479

PATIENT
  Sex: Female

DRUGS (2)
  1. ESTROGEL [Suspect]
     Active Substance: ESTRADIOL
     Indication: Hot flush
  2. ESTRADIOL [Suspect]
     Active Substance: ESTRADIOL

REACTIONS (2)
  - Product delivery mechanism issue [Unknown]
  - Night sweats [Not Recovered/Not Resolved]
